FAERS Safety Report 8830225 (Version 1)
Quarter: 2012Q4

REPORT INFORMATION
  Report Type: Spontaneous
  Country: US (occurrence: None)
  Receive Date: 20121005
  Receipt Date: 20121005
  Transmission Date: 20130627
  Serious: Yes (Other)
  Sender: FDA-Public Use
  Company Number: None

PATIENT
  Age: 36 Year
  Sex: Female
  Weight: 56.2 kg

DRUGS (2)
  1. IOPAMIDOL [Suspect]
     Indication: SCAN WITH CONTRAST
     Route: 042
     Dates: start: 20120625
  2. IOPAMIDOL [Suspect]
     Indication: SCAN WITH CONTRAST

REACTIONS (2)
  - Pruritus [None]
  - Urticaria [None]
